FAERS Safety Report 5319273-6 (Version None)
Quarter: 2007Q2

REPORT INFORMATION
  Report Type: 
  Country: None (occurrence: None)
  Receive Date: 20070508
  Receipt Date: 20070504
  Transmission Date: 20071010
  Serious: Yes (Other)
  Sender: FDA-Public Use
  Company Number: HQWYE724420APR07

PATIENT
  Sex: Male

DRUGS (4)
  1. TIGECYCLINE [Suspect]
     Dosage: 100 MG ONCE THEN 50 MG EVERY 12 HOURS
     Route: 042
     Dates: start: 20070415, end: 20070417
  2. NEFOPAM [Concomitant]
     Indication: ANALGESIC EFFECT
     Dosage: UNKNOWN
     Route: 042
     Dates: start: 20070416
  3. PERFALGAN [Concomitant]
     Indication: ANALGESIC EFFECT
     Dosage: 4 G DAILY
     Route: 042
     Dates: start: 20070416
  4. MORPHINE [Concomitant]
     Indication: ANALGESIC EFFECT
     Dosage: UNKNOWN
     Route: 042
     Dates: start: 20070416, end: 20070416

REACTIONS (3)
  - ALANINE AMINOTRANSFERASE INCREASED [None]
  - ASPARTATE AMINOTRANSFERASE INCREASED [None]
  - JAUNDICE [None]
